FAERS Safety Report 6748426-5 (Version None)
Quarter: 2010Q2

REPORT INFORMATION
  Report Type: 
  Country: None (occurrence: None)
  Receive Date: 20100601
  Receipt Date: 20100601
  Transmission Date: 20101027
  Serious: Yes (Hospitalization, Other)
  Sender: FDA-Public Use
  Company Number: None

PATIENT
  Age: 10 Year
  Sex: Male
  Weight: 50 kg

DRUGS (5)
  1. CHILDREN'S TYLENOL SUSPENSION [Suspect]
     Indication: ABDOMINAL PAIN
     Dosage: 10 TO 15ML EVERY 6 HOURS PO
     Route: 048
     Dates: start: 20100115, end: 20100415
  2. CHILDREN'S TYLENOL SUSPENSION [Suspect]
     Indication: HEADACHE
     Dosage: 10 TO 15ML EVERY 6 HOURS PO
     Route: 048
     Dates: start: 20100115, end: 20100415
  3. CHILDREN'S MOTRIN [Suspect]
     Indication: ABDOMINAL PAIN
     Dosage: 10 TO 15ML EVERY 6 HOURS PO
     Route: 048
     Dates: start: 20100115, end: 20100415
  4. CHILDREN'S MOTRIN [Suspect]
     Indication: HEADACHE
     Dosage: 10 TO 15ML EVERY 6 HOURS PO
     Route: 048
     Dates: start: 20100115, end: 20100415
  5. BENADRYL LIQUID SUSPENSION [Concomitant]

REACTIONS (12)
  - ABDOMINAL PAIN [None]
  - APPENDICITIS [None]
  - APPENDIX DISORDER [None]
  - GASTROINTESTINAL INFLAMMATION [None]
  - INFECTION [None]
  - INSOMNIA [None]
  - LYMPHADENITIS [None]
  - OROPHARYNGEAL PAIN [None]
  - PRODUCT CONTAMINATION MICROBIAL [None]
  - PRODUCT QUALITY ISSUE [None]
  - PYREXIA [None]
  - SCAR [None]
